FAERS Safety Report 10897517 (Version 1)
Quarter: 2015Q1

REPORT INFORMATION
  Report Type: Spontaneous
  Country: US (occurrence: None)
  Receive Date: 20150302
  Receipt Date: 20150302
  Transmission Date: 20150721
  Serious: Yes (Hospitalization)
  Sender: FDA-Public Use
  Company Number: None

PATIENT
  Age: 66 Year
  Sex: Male
  Weight: 80 kg

DRUGS (2)
  1. PREDNISONE. [Suspect]
     Active Substance: PREDNISONE
     Dates: end: 20150209
  2. TAXOTERE [Suspect]
     Active Substance: DOCETAXEL
     Dates: end: 20150120

REACTIONS (8)
  - Haematemesis [None]
  - White blood cell count increased [None]
  - Fall [None]
  - Dysstasia [None]
  - Anaemia [None]
  - Melaena [None]
  - Hyperglycaemia [None]
  - Dehydration [None]

NARRATIVE: CASE EVENT DATE: 20150209
